FAERS Safety Report 19260132 (Version 1)
Quarter: 2021Q2

REPORT INFORMATION
  Report Type: Report from Study
  Country: US (occurrence: US)
  Receive Date: 20210514
  Receipt Date: 20210514
  Transmission Date: 20210717
  Serious: Yes (Hospitalization)
  Sender: FDA-Public Use
  Company Number: US-JAZZ-2020-US-007822

PATIENT
  Sex: Female

DRUGS (61)
  1. XYREM [Suspect]
     Active Substance: SODIUM OXYBATE
     Dosage: 2.25 GRAM, BID
     Route: 048
     Dates: start: 201104, end: 201105
  2. XYREM [Suspect]
     Active Substance: SODIUM OXYBATE
     Dosage: 3.75 GRAM, BID
     Route: 048
     Dates: start: 201906
  3. XYREM [Suspect]
     Active Substance: SODIUM OXYBATE
     Dosage: 3 GRAM, FIRST DOSE
     Route: 048
     Dates: start: 202009, end: 202009
  4. METOPROLOL SUCCINATE. [Concomitant]
     Active Substance: METOPROLOL SUCCINATE
  5. AMLODIPINE BESYLATE. [Concomitant]
     Active Substance: AMLODIPINE BESYLATE
  6. ELOCON [Concomitant]
     Active Substance: MOMETASONE FUROATE
  7. DIPHENOXYLATE/ATROPINE [Concomitant]
     Active Substance: ATROPINE\DIPHENOXYLATE
  8. MAGNESIUM GLUCONATE [Concomitant]
     Active Substance: MAGNESIUM GLUCONATE
  9. VIT D [Concomitant]
     Active Substance: VITAMIN D NOS
  10. PRAVASTATIN SODIUM. [Concomitant]
     Active Substance: PRAVASTATIN SODIUM
  11. BYDUREON [Concomitant]
     Active Substance: EXENATIDE
  12. HAIR, SKIN + NAILS [BIOTIN] [Concomitant]
  13. HUMALOG [Concomitant]
     Active Substance: INSULIN LISPRO
  14. LANTUS [Concomitant]
     Active Substance: INSULIN GLARGINE
  15. VITAMIN B COMPLEX [Concomitant]
     Active Substance: CYANOCOBALAMIN\DEXPANTHENOL\NIACINAMIDE\PYRIDOXINE HYDROCHLORIDE\RIBOFLAVIN 5^-PHOSPHATE SODIUM\THIAMINE HYDROCHLORIDE\VITAMIN B COMPLEX
  16. XYREM [Suspect]
     Active Substance: SODIUM OXYBATE
     Dosage: 3 GRAM, BID
     Route: 048
  17. XYREM [Suspect]
     Active Substance: SODIUM OXYBATE
     Dosage: 2.25 GRAM, SECOND DOSE
     Route: 048
     Dates: start: 202009, end: 202009
  18. REFRESH OPTIVE [Concomitant]
     Active Substance: CARBOXYMETHYLCELLULOSE SODIUM\GLYCERIN
  19. LOTEMAX [Concomitant]
     Active Substance: LOTEPREDNOL ETABONATE
  20. HYDROCHLOROTHIAZIDE. [Concomitant]
     Active Substance: HYDROCHLOROTHIAZIDE
  21. NORCO [Concomitant]
     Active Substance: ACETAMINOPHEN\HYDROCODONE BITARTRATE
  22. XYREM [Suspect]
     Active Substance: SODIUM OXYBATE
     Dosage: 2.25 GRAM, BID
     Route: 048
     Dates: start: 201403, end: 201405
  23. XYREM [Suspect]
     Active Substance: SODIUM OXYBATE
     Dosage: DOSE ADJUSTMENT
     Route: 048
     Dates: start: 201405, end: 201808
  24. XYREM [Suspect]
     Active Substance: SODIUM OXYBATE
     Dosage: 3 GRAM, FIRST DOSE
     Route: 048
  25. HUMULIN N [Concomitant]
     Active Substance: INSULIN HUMAN
  26. HYDROCODONE/PARACETAMOL [Concomitant]
     Active Substance: ACETAMINOPHEN\HYDROCODONE BITARTRATE
  27. TURMERIC [CURCUMA LONGA] [Concomitant]
     Active Substance: HERBALS\TURMERIC
  28. CHOLESTYRAMINE. [Concomitant]
     Active Substance: CHOLESTYRAMINE
  29. FLECTOR [DICLOFENAC SODIUM] [Concomitant]
     Active Substance: DICLOFENAC SODIUM
  30. HYDROCODONE [Concomitant]
     Active Substance: HYDROCODONE
  31. VITAMIN D3 [Concomitant]
     Active Substance: CHOLECALCIFEROL
  32. XYREM [Suspect]
     Active Substance: SODIUM OXYBATE
     Dosage: 2.25 GRAM, BID
     Route: 048
     Dates: start: 200912, end: 201001
  33. XYREM [Suspect]
     Active Substance: SODIUM OXYBATE
     Dosage: 3.75 GRAM, BID
     Route: 048
     Dates: start: 202009, end: 202009
  34. XYREM [Suspect]
     Active Substance: SODIUM OXYBATE
     Dosage: 3 GRAM, FIRST DOSE
     Route: 048
     Dates: start: 202009
  35. COCONUT OIL [Concomitant]
     Active Substance: COCONUT OIL
  36. PRIMIDONE. [Concomitant]
     Active Substance: PRIMIDONE
  37. LITHIUM CARBONATE. [Concomitant]
     Active Substance: LITHIUM CARBONATE
  38. XYREM [Suspect]
     Active Substance: SODIUM OXYBATE
     Dosage: 3 GRAM
     Route: 048
     Dates: start: 201001, end: 201004
  39. XYREM [Suspect]
     Active Substance: SODIUM OXYBATE
     Dosage: LITTLE BIT INCREASED UNKNOWN DOSE
     Route: 048
  40. CALCIUM [Concomitant]
     Active Substance: CALCIUM
  41. CRANBERRY PLUS VITAMIN C [Concomitant]
  42. XYREM [Suspect]
     Active Substance: SODIUM OXYBATE
     Dosage: 2.25 GRAM, BID
     Route: 048
     Dates: start: 201204, end: 201205
  43. PROVIGIL [Concomitant]
     Active Substance: MODAFINIL
  44. ENULOSE [Concomitant]
     Active Substance: LACTULOSE
  45. KRILL OIL [Concomitant]
     Active Substance: DIETARY SUPPLEMENT\KRILL OIL
  46. VESICARE [Concomitant]
     Active Substance: SOLIFENACIN SUCCINATE
  47. ASPIRIN 81 [Concomitant]
     Active Substance: ASPIRIN
  48. OMEGA 3 FISH OILS [Concomitant]
     Active Substance: OMEGA-3 FATTY ACIDS
  49. XYREM [Suspect]
     Active Substance: SODIUM OXYBATE
     Indication: NARCOLEPSY
     Dosage: 2.25 GRAM, BID
     Route: 048
     Dates: start: 200606, end: 200801
  50. XYREM [Suspect]
     Active Substance: SODIUM OXYBATE
     Dosage: 2.25 GRAM, BID
     Route: 048
     Dates: start: 201302, end: 201306
  51. XYREM [Suspect]
     Active Substance: SODIUM OXYBATE
     Dosage: 3 GRAM, BID
     Route: 048
     Dates: start: 201808, end: 201812
  52. DIFLUCAN [Concomitant]
     Active Substance: FLUCONAZOLE
  53. KEFLEX [Concomitant]
     Active Substance: CEPHALEXIN
  54. LISINOPRIL. [Concomitant]
     Active Substance: LISINOPRIL
  55. LYRICA [Concomitant]
     Active Substance: PREGABALIN
  56. XYREM [Suspect]
     Active Substance: SODIUM OXYBATE
     Dosage: 2.5 GRAM, SECOND DOSE
     Route: 048
     Dates: start: 202009
  57. XYREM [Suspect]
     Active Substance: SODIUM OXYBATE
     Dosage: 2.25 GRAM, SECOND DOSE
     Route: 048
  58. XARELTO [Concomitant]
     Active Substance: RIVAROXABAN
  59. RESTASIS [Concomitant]
     Active Substance: CYCLOSPORINE
  60. RITALIN [Concomitant]
     Active Substance: METHYLPHENIDATE HYDROCHLORIDE
  61. DILANTIN [Concomitant]
     Active Substance: PHENYTOIN

REACTIONS (1)
  - Somnolence [Recovered/Resolved]
